FAERS Safety Report 25239798 (Version 1)
Quarter: 2025Q2

REPORT INFORMATION
  Report Type: Spontaneous
  Country: KR (occurrence: KR)
  Receive Date: 20250425
  Receipt Date: 20250425
  Transmission Date: 20250717
  Serious: Yes (Other)
  Sender: MYLAN
  Company Number: KR-MYLANLABS-2025M1034642

PATIENT
  Age: 65 Year
  Sex: Female

DRUGS (60)
  1. ZELDOX [Suspect]
     Active Substance: ZIPRASIDONE
     Indication: Product used for unknown indication
  2. ZELDOX [Suspect]
     Active Substance: ZIPRASIDONE
     Route: 065
  3. ZELDOX [Suspect]
     Active Substance: ZIPRASIDONE
     Route: 065
  4. ZELDOX [Suspect]
     Active Substance: ZIPRASIDONE
  5. ASCORBIC ACID [Concomitant]
     Active Substance: ASCORBIC ACID
  6. ASCORBIC ACID [Concomitant]
     Active Substance: ASCORBIC ACID
     Route: 065
  7. ASCORBIC ACID [Concomitant]
     Active Substance: ASCORBIC ACID
     Route: 065
  8. ASCORBIC ACID [Concomitant]
     Active Substance: ASCORBIC ACID
  9. LEVOSULPIRIDE [Concomitant]
     Active Substance: LEVOSULPIRIDE
  10. LEVOSULPIRIDE [Concomitant]
     Active Substance: LEVOSULPIRIDE
     Route: 065
  11. LEVOSULPIRIDE [Concomitant]
     Active Substance: LEVOSULPIRIDE
     Route: 065
  12. LEVOSULPIRIDE [Concomitant]
     Active Substance: LEVOSULPIRIDE
  13. GENTAMICIN SULFATE [Concomitant]
     Active Substance: GENTAMICIN SULFATE
  14. GENTAMICIN SULFATE [Concomitant]
     Active Substance: GENTAMICIN SULFATE
     Route: 065
  15. GENTAMICIN SULFATE [Concomitant]
     Active Substance: GENTAMICIN SULFATE
     Route: 065
  16. GENTAMICIN SULFATE [Concomitant]
     Active Substance: GENTAMICIN SULFATE
  17. CEFACLOR [Concomitant]
     Active Substance: CEFACLOR
  18. CEFACLOR [Concomitant]
     Active Substance: CEFACLOR
     Route: 065
  19. CEFACLOR [Concomitant]
     Active Substance: CEFACLOR
     Route: 065
  20. CEFACLOR [Concomitant]
     Active Substance: CEFACLOR
  21. MAGNESIUM HYDROXIDE [Concomitant]
     Active Substance: MAGNESIUM HYDROXIDE
  22. MAGNESIUM HYDROXIDE [Concomitant]
     Active Substance: MAGNESIUM HYDROXIDE
     Route: 065
  23. MAGNESIUM HYDROXIDE [Concomitant]
     Active Substance: MAGNESIUM HYDROXIDE
     Route: 065
  24. MAGNESIUM HYDROXIDE [Concomitant]
     Active Substance: MAGNESIUM HYDROXIDE
  25. EPINEPHRINE [Concomitant]
     Active Substance: EPINEPHRINE
  26. EPINEPHRINE [Concomitant]
     Active Substance: EPINEPHRINE
     Route: 065
  27. EPINEPHRINE [Concomitant]
     Active Substance: EPINEPHRINE
     Route: 065
  28. EPINEPHRINE [Concomitant]
     Active Substance: EPINEPHRINE
  29. THIAMINE HYDROCHLORIDE [Concomitant]
     Active Substance: THIAMINE HYDROCHLORIDE
  30. THIAMINE HYDROCHLORIDE [Concomitant]
     Active Substance: THIAMINE HYDROCHLORIDE
     Route: 065
  31. THIAMINE HYDROCHLORIDE [Concomitant]
     Active Substance: THIAMINE HYDROCHLORIDE
     Route: 065
  32. THIAMINE HYDROCHLORIDE [Concomitant]
     Active Substance: THIAMINE HYDROCHLORIDE
  33. FUROSEMIDE [Concomitant]
     Active Substance: FUROSEMIDE
  34. FUROSEMIDE [Concomitant]
     Active Substance: FUROSEMIDE
     Route: 065
  35. FUROSEMIDE [Concomitant]
     Active Substance: FUROSEMIDE
     Route: 065
  36. FUROSEMIDE [Concomitant]
     Active Substance: FUROSEMIDE
  37. BROMHEXINE HYDROCHLORIDE [Concomitant]
     Active Substance: BROMHEXINE HYDROCHLORIDE
  38. BROMHEXINE HYDROCHLORIDE [Concomitant]
     Active Substance: BROMHEXINE HYDROCHLORIDE
     Route: 065
  39. BROMHEXINE HYDROCHLORIDE [Concomitant]
     Active Substance: BROMHEXINE HYDROCHLORIDE
     Route: 065
  40. BROMHEXINE HYDROCHLORIDE [Concomitant]
     Active Substance: BROMHEXINE HYDROCHLORIDE
  41. IBUPROFEN [Concomitant]
     Active Substance: IBUPROFEN
  42. IBUPROFEN [Concomitant]
     Active Substance: IBUPROFEN
     Route: 065
  43. IBUPROFEN [Concomitant]
     Active Substance: IBUPROFEN
     Route: 065
  44. IBUPROFEN [Concomitant]
     Active Substance: IBUPROFEN
  45. CEFUROXIME SODIUM [Concomitant]
     Active Substance: CEFUROXIME SODIUM
  46. CEFUROXIME SODIUM [Concomitant]
     Active Substance: CEFUROXIME SODIUM
     Route: 065
  47. CEFUROXIME SODIUM [Concomitant]
     Active Substance: CEFUROXIME SODIUM
     Route: 065
  48. CEFUROXIME SODIUM [Concomitant]
     Active Substance: CEFUROXIME SODIUM
  49. FAMOTIDINE [Concomitant]
     Active Substance: FAMOTIDINE
  50. FAMOTIDINE [Concomitant]
     Active Substance: FAMOTIDINE
     Route: 065
  51. FAMOTIDINE [Concomitant]
     Active Substance: FAMOTIDINE
     Route: 065
  52. FAMOTIDINE [Concomitant]
     Active Substance: FAMOTIDINE
  53. LORAZEPAM [Concomitant]
     Active Substance: LORAZEPAM
  54. LORAZEPAM [Concomitant]
     Active Substance: LORAZEPAM
     Route: 065
  55. LORAZEPAM [Concomitant]
     Active Substance: LORAZEPAM
     Route: 065
  56. LORAZEPAM [Concomitant]
     Active Substance: LORAZEPAM
  57. HYDROCHLOROTHIAZIDE [Concomitant]
     Active Substance: HYDROCHLOROTHIAZIDE
  58. HYDROCHLOROTHIAZIDE [Concomitant]
     Active Substance: HYDROCHLOROTHIAZIDE
     Route: 065
  59. HYDROCHLOROTHIAZIDE [Concomitant]
     Active Substance: HYDROCHLOROTHIAZIDE
     Route: 065
  60. HYDROCHLOROTHIAZIDE [Concomitant]
     Active Substance: HYDROCHLOROTHIAZIDE

REACTIONS (5)
  - Pneumonia [Unknown]
  - Pulmonary oedema [Unknown]
  - Respiratory failure [Unknown]
  - Acute kidney injury [Unknown]
  - Rhabdomyolysis [Unknown]
